FAERS Safety Report 19289186 (Version 2)
Quarter: 2021Q2

REPORT INFORMATION
  Report Type: Spontaneous
  Country: DE (occurrence: DE)
  Receive Date: 20210522
  Receipt Date: 20210601
  Transmission Date: 20210717
  Serious: Yes (Other)
  Sender: FDA-Public Use
  Company Number: NVSC2021DE105127

PATIENT
  Sex: Female

DRUGS (3)
  1. FOSTER [Concomitant]
     Active Substance: BECLOMETHASONE\FORMOTEROL
     Indication: ASTHMA
     Dosage: 2 DF, QD (MORGENS UND ABENDS EIN HUB)/(INHALATION GAS)
     Route: 055
  2. EZETIMIBE. [Suspect]
     Active Substance: EZETIMIBE
     Indication: BLOOD CHOLESTEROL INCREASED
     Dosage: 1 DF, QD (JEDEN ABEND 1 TABLETTE)
     Route: 065
     Dates: start: 20200813, end: 20210417
  3. THYRONAJOD [Concomitant]
     Active Substance: LEVOTHYROXINE SODIUM\POTASSIUM IODIDE
     Indication: PRODUCT USED FOR UNKNOWN INDICATION
     Dosage: 1 DF, QD (SEIT CA. 40 JAHREN MORGENS 1 TABLETTE NUCHTERN)/(100 HENNING)
     Route: 048

REACTIONS (6)
  - Fatigue [Recovered/Resolved]
  - Vision blurred [Recovered/Resolved]
  - Hypotonia [Recovered/Resolved]
  - Muscle rupture [Recovered/Resolved]
  - Bursitis [Recovered/Resolved]
  - Gait disturbance [Recovering/Resolving]

NARRATIVE: CASE EVENT DATE: 2020
